FAERS Safety Report 7520718-1 (Version None)
Quarter: 2011Q2

REPORT INFORMATION
  Report Type: 
  Country: None (occurrence: None)
  Receive Date: 20110603
  Receipt Date: 20101117
  Transmission Date: 20111010
  Serious: Yes (Death, Other)
  Sender: FDA-Public Use
  Company Number: JP-BAYER-200912311BYL

PATIENT
  Age: 66 Year
  Sex: Female
  Weight: 51.1 kg

DRUGS (9)
  1. LASIX [Concomitant]
     Dosage: SINCE BEFORE ADMINISTRATION
     Route: 048
  2. NAIXAN [Concomitant]
     Dosage: 3 DF (DAILY DOSE), , ORAL
     Route: 048
     Dates: start: 20090710
  3. ALDACTONE [Concomitant]
     Dosage: SINCE BEFORE ADMINISTRATION
     Route: 048
  4. NEXAVAR [Suspect]
     Dosage: 400 MG (DAILY DOSE), , ORAL
     Route: 048
     Dates: start: 20090728, end: 20090805
  5. NEXAVAR [Suspect]
     Indication: HEPATIC NEOPLASM MALIGNANT
     Route: 048
     Dates: start: 20090701, end: 20090707
  6. UREPEARL [Concomitant]
     Indication: PRURITUS GENERALISED
     Route: 061
     Dates: start: 20090703
  7. PORTOLAC [Concomitant]
     Dosage: 18 G (DAILY DOSE), , ORAL
     Route: 048
     Dates: start: 20090710
  8. NEXAVAR [Suspect]
     Dosage: 400 MG (DAILY DOSE), , ORAL
     Route: 048
     Dates: start: 20090811, end: 20090827
  9. MORIHEPAMIN [Concomitant]
     Dosage: 500 ML (DAILY DOSE), , INTRAVENOUS
     Route: 042
     Dates: start: 20090707

REACTIONS (6)
  - PALMAR-PLANTAR ERYTHRODYSAESTHESIA SYNDROME [None]
  - GASTRIC ULCER [None]
  - HEPATIC FUNCTION ABNORMAL [None]
  - RASH [None]
  - PYREXIA [None]
  - HEPATIC NEOPLASM MALIGNANT [None]
